FAERS Safety Report 16841495 (Version 1)
Quarter: 2019Q3

REPORT INFORMATION
  Report Type: Spontaneous
  Country: ES (occurrence: ES)
  Receive Date: 20190923
  Receipt Date: 20190923
  Transmission Date: 20191005
  Serious: Yes (Other)
  Sender: FDA-Public Use
  Company Number: ES-US WORLDMEDS, LLC-E2B_00003072

PATIENT
  Age: 74 Year
  Sex: Male
  Weight: 47 kg

DRUGS (14)
  1. DUODOPA [Interacting]
     Active Substance: CARBIDOPA\LEVODOPA
     Dosage: DC 3.5 AND DE 3.2 ML
     Route: 050
     Dates: start: 2016, end: 2016
  2. DUODOPA [Interacting]
     Active Substance: CARBIDOPA\LEVODOPA
     Dosage: CONTINUOUS DOSE: 4.2 ML, EXTRA DOSE: 3.4 ML
     Route: 050
     Dates: start: 2016, end: 20161104
  3. DUODOPA [Interacting]
     Active Substance: CARBIDOPA\LEVODOPA
     Dosage: CONTINUOUS DOSE IN THE AFTERNOON: 4.3 ML/H
     Route: 050
     Dates: start: 2016, end: 2016
  4. LORAZEPAM. [Concomitant]
     Active Substance: LORAZEPAM
  5. DUODOPA [Interacting]
     Active Substance: CARBIDOPA\LEVODOPA
     Indication: PRODUCT USED FOR UNKNOWN INDICATION
     Route: 050
     Dates: start: 20160215, end: 2016
  6. DUODOPA [Interacting]
     Active Substance: CARBIDOPA\LEVODOPA
     Dosage: DC 3.5 ML/H AND DE 3.3 ML
     Route: 050
     Dates: start: 2016, end: 2016
  7. DUODOPA [Interacting]
     Active Substance: CARBIDOPA\LEVODOPA
     Dosage: DC 3.3 AND DE 3 ML
     Route: 050
     Dates: start: 2016, end: 2016
  8. LORAZEPAM. [Concomitant]
     Active Substance: LORAZEPAM
     Indication: PRODUCT USED FOR UNKNOWN INDICATION
     Dosage: CONTINUOUS DOSE: 4.5 ML/H EXTRA DOSE: 3.6 ML
     Route: 065
     Dates: start: 20161104
  9. DUODOPA [Interacting]
     Active Substance: CARBIDOPA\LEVODOPA
     Dosage: CONTINUOUS DOSE: 4.5 ML/HEXTRA DOSE: 3.6 ML
     Route: 050
     Dates: start: 20161104, end: 201611
  10. DUODOPA [Interacting]
     Active Substance: CARBIDOPA\LEVODOPA
     Dosage: AFTERNOON: ED: 3.4 ML, CD: 4 ML/H, MORNING: MD: 8.3 ML, CD: 3.5 ML/H
     Route: 050
     Dates: start: 201611, end: 2016
  11. SINEMET LP [Concomitant]
     Active Substance: CARBIDOPA\LEVODOPA
     Indication: PRODUCT USED FOR UNKNOWN INDICATION
     Dosage: CONTINUOUS DOSE: 4.5 ML/HEXTRA DOSE: 3.6 ML
     Route: 065
     Dates: start: 20161104
  12. XADAGO [Suspect]
     Active Substance: SAFINAMIDE MESYLATE
     Indication: PRODUCT USED FOR UNKNOWN INDICATION
     Route: 065
     Dates: start: 201607, end: 201608
  13. DUODOPA [Interacting]
     Active Substance: CARBIDOPA\LEVODOPA
     Dosage: MD: 11 ML; CD: 3.9 ML; ED: 5 ML, IN THE EVENING: CD: 4.5 ML; ED: 5 ML
     Route: 050
     Dates: start: 2016, end: 2016
  14. DUODOPA [Interacting]
     Active Substance: CARBIDOPA\LEVODOPA
     Dosage: DC IN THE AFTERNOON 4ML/H AND DE 3.3 ML
     Route: 050
     Dates: start: 2016, end: 2016

REACTIONS (14)
  - Drug interaction [Recovering/Resolving]
  - Restlessness [Not Recovered/Not Resolved]
  - Musculoskeletal stiffness [Recovered/Resolved]
  - Akinesia [Recovering/Resolving]
  - Dyskinesia [Recovered/Resolved]
  - Dysphagia [Recovered/Resolved]
  - Fatigue [Not Recovered/Not Resolved]
  - Weight decreased [Recovered/Resolved]
  - Thrombosis [Unknown]
  - On and off phenomenon [Recovered/Resolved]
  - Freezing phenomenon [Not Recovered/Not Resolved]
  - Drug ineffective [Unknown]
  - Mental disorder [Recovered/Resolved]
  - Anxiety [Not Recovered/Not Resolved]

NARRATIVE: CASE EVENT DATE: 2016
